FAERS Safety Report 8541936-X (Version None)
Quarter: 2012Q3

REPORT INFORMATION
  Report Type: 
  Country: None (occurrence: None)
  Receive Date: 20120726
  Receipt Date: 20120713
  Transmission Date: 20120928
  Serious: No
  Sender: FDA-Public Use
  Company Number: US-ASTRAZENECA-2012SE49491

PATIENT
  Age: 36 Year
  Sex: Male

DRUGS (2)
  1. SYMBICORT [Suspect]
     Dosage: UNKNOWN
     Route: 055
  2. PULMICORT FLEXHALER [Concomitant]

REACTIONS (1)
  - FEELING ABNORMAL [None]
